FAERS Safety Report 7904449-1 (Version None)
Quarter: 2011Q4

REPORT INFORMATION
  Report Type: 
  Country: None (occurrence: None)
  Receive Date: 20111109
  Receipt Date: 20110912
  Transmission Date: 20120403
  Serious: No
  Sender: FDA-Public Use
  Company Number: US-ABBOTT-11P-163-0729757-00

PATIENT
  Sex: Male
  Weight: 53.572 kg

DRUGS (3)
  1. EPZICOM [Suspect]
     Indication: HIV INFECTION
     Dates: start: 20110501, end: 20110501
  2. REYATAZ [Suspect]
     Indication: HIV INFECTION
     Dates: start: 20110501, end: 20110501
  3. NORVIR [Suspect]
     Indication: HIV INFECTION
     Dosage: 100 MG TABS DAILY
     Dates: start: 20110501, end: 20110501

REACTIONS (4)
  - DYSPNOEA [None]
  - NAUSEA [None]
  - DIARRHOEA [None]
  - VOMITING [None]
